FAERS Safety Report 4678921-4 (Version None)
Quarter: 2005Q2

REPORT INFORMATION
  Report Type: 
  Country: None (occurrence: None)
  Receive Date: 20050531
  Receipt Date: 20050517
  Transmission Date: 20051028
  Serious: Yes (Other)
  Sender: FDA-Public Use
  Company Number: 200512090BCC

PATIENT
  Age: 46 Year
  Sex: Male
  Weight: 104.3273 kg

DRUGS (1)
  1. ALKA-SELTZER PLUS COLD EFFERVESCENT [Suspect]
     Indication: NASOPHARYNGITIS
     Dosage: 500 MG, QD ORAL
     Route: 048
     Dates: start: 20050516, end: 20050517

REACTIONS (1)
  - BLOOD URINE PRESENT [None]
